FAERS Safety Report 19447478 (Version 3)
Quarter: 2021Q3

REPORT INFORMATION
  Report Type: Report from Study
  Country: BR (occurrence: BR)
  Receive Date: 20210622
  Receipt Date: 20210712
  Transmission Date: 20211014
  Serious: Yes (Other)
  Sender: FDA-Public Use
  Company Number: NVSC2021BR133077

PATIENT
  Age: 62 Year
  Sex: Female

DRUGS (3)
  1. PIQRAY [Suspect]
     Active Substance: ALPELISIB
     Indication: BREAST CANCER FEMALE
     Dosage: 250 MG, QD (IN THE MORNING USE 1 TABLET OF 200 MG AND I THE NIGHT 1 TABLET OF 50 MG)
     Route: 065
  2. FULVESTRANT. [Concomitant]
     Active Substance: FULVESTRANT
     Indication: PRODUCT USED FOR UNKNOWN INDICATION
     Dosage: UNK UNK, QW2
     Route: 065
     Dates: start: 20210608
  3. PIQRAY [Suspect]
     Active Substance: ALPELISIB
     Dosage: 300 MG, QD (IN THE MORNING USE 1 TABLET OF 200 MG AND I THE NIGHT 2 TABLET OF 50 MG)
     Route: 065
     Dates: start: 20210603

REACTIONS (14)
  - Alopecia [Not Recovered/Not Resolved]
  - Nail injury [Unknown]
  - Inappropriate schedule of product administration [Not Recovered/Not Resolved]
  - Metastases to bone [Unknown]
  - Coccydynia [Unknown]
  - Bone pain [Unknown]
  - Ageusia [Not Recovered/Not Resolved]
  - Abdominal pain [Unknown]
  - Thirst [Not Recovered/Not Resolved]
  - Product administration error [Unknown]
  - Dry mouth [Not Recovered/Not Resolved]
  - Diarrhoea [Not Recovered/Not Resolved]
  - Hypersensitivity [Unknown]
  - Metastases to lung [Unknown]

NARRATIVE: CASE EVENT DATE: 20210603
